FAERS Safety Report 5933534-9 (Version None)
Quarter: 2008Q4

REPORT INFORMATION
  Report Type: 
  Country: None (occurrence: None)
  Receive Date: 20081023
  Receipt Date: 20060420
  Transmission Date: 20090506
  Serious: Yes (Other)
  Sender: FDA-Public Use
  Company Number: 2006AL001995

PATIENT
  Age: 82 Year
  Sex: Female

DRUGS (14)
  1. SULFATRIM PEDIATRIC [Suspect]
     Indication: URINARY TRACT INFECTION
     Dosage: 200 MG; BID; PO
     Route: 048
     Dates: start: 20060313, end: 20060313
  2. ENULOSE [Suspect]
     Dosage: 15 ML; BID
  3. PERINDOPRIL [Concomitant]
  4. NITROGLYCERIN [Concomitant]
  5. GAVISCON [Concomitant]
  6. ATORVASTATIN CALCIUM [Concomitant]
  7. BECLOMETHASONE DIPROPIONATE [Concomitant]
  8. ALBUTEROL SULFATE [Concomitant]
  9. HIRUDOID [Concomitant]
  10. LEVOTHYROXINE SODIUM [Concomitant]
  11. ASPIRIN [Concomitant]
  12. NICORANDIL [Concomitant]
  13. ACETAMINOPHEN [Concomitant]
  14. BISOPROLOL FUMARATE [Concomitant]

REACTIONS (2)
  - EYE SWELLING [None]
  - RASH GENERALISED [None]
